FAERS Safety Report 11869024 (Version 2)
Quarter: 2016Q1

REPORT INFORMATION
  Report Type: Report from Study
  Country: JP (occurrence: JP)
  Receive Date: 20151225
  Receipt Date: 20160109
  Transmission Date: 20160526
  Serious: Yes (Death, Life-Threatening, Other)
  Sender: FDA-Public Use
  Company Number: JP-AMGEN-JPNNI2015138979

PATIENT
  Age: 67 Year
  Sex: Female
  Weight: 56 kg

DRUGS (8)
  1. DENOSUMAB [Suspect]
     Active Substance: DENOSUMAB
     Indication: METASTASES TO BONE
     Dosage: 120 MG, UNK
     Route: 058
     Dates: start: 20131017, end: 20150501
  2. DENOTAS [Concomitant]
     Active Substance: CALCIUM CARBONATE\CHOLECALCIFEROL\MAGNESIUM CARBONATE
     Dosage: 2 DF, QD
     Route: 048
     Dates: start: 20131007, end: 20150429
  3. XELODA [Concomitant]
     Active Substance: CAPECITABINE
     Dosage: UNK
     Route: 065
     Dates: start: 20140626, end: 20150325
  4. ENDOXAN                            /00021101/ [Concomitant]
     Active Substance: CYCLOPHOSPHAMIDE
     Dosage: UNK
     Route: 065
     Dates: start: 20140626, end: 20150325
  5. DECADRON [Concomitant]
     Active Substance: DEXAMETHASONE
     Dosage: UNK
     Route: 065
     Dates: start: 20150421, end: 20150818
  6. MUCOSTA [Concomitant]
     Active Substance: REBAMIPIDE
     Dosage: 180 MG, QD
     Route: 048
     Dates: start: 20140403, end: 20150429
  7. LEVOFLOXACIN. [Concomitant]
     Active Substance: LEVOFLOXACIN
     Dosage: 500 MG, QD
     Route: 048
     Dates: start: 20150613, end: 20150728
  8. PACLITAXEL. [Concomitant]
     Active Substance: PACLITAXEL
     Dosage: UNK
     Route: 065
     Dates: start: 20150421, end: 20150818

REACTIONS (3)
  - Electrolyte imbalance [Not Recovered/Not Resolved]
  - Meningism [Fatal]
  - Hypoalbuminaemia [Not Recovered/Not Resolved]

NARRATIVE: CASE EVENT DATE: 20150419
